FAERS Safety Report 14777194 (Version 1)
Quarter: 2018Q2

REPORT INFORMATION
  Report Type: Spontaneous
  Country: MY (occurrence: MY)
  Receive Date: 20180419
  Receipt Date: 20180419
  Transmission Date: 20180711
  Serious: Yes (Hospitalization, Other)
  Sender: FDA-Public Use
  Company Number: MY-MACLEODS PHARMACEUTICALS US LTD-MAC2018012617

PATIENT

DRUGS (4)
  1. RISPERIDONE. [Interacting]
     Active Substance: RISPERIDONE
     Indication: SCHIZOPHRENIA
     Dosage: UNK
     Route: 048
  2. RISPERIDONE. [Interacting]
     Active Substance: RISPERIDONE
     Dosage: 2 MG, UNK, INCREASED TO A DOSE OF 2MG OVER 2 DAYS
     Route: 048
  3. OLANZAPINE 5MG DISINTEGRATING TABLET [Suspect]
     Active Substance: OLANZAPINE
     Indication: SCHIZOPHRENIA
     Dosage: 5 MG, TOTAL, ORODISPERSIBLE TABLET
     Route: 048
  4. RISPERIDONE. [Interacting]
     Active Substance: RISPERIDONE
     Dosage: UNK, REDUCED GRADUALLY
     Route: 048

REACTIONS (2)
  - Drug interaction [Recovered/Resolved]
  - Leukopenia [Recovered/Resolved]
